FAERS Safety Report 6740706-2 (Version None)
Quarter: 2010Q2

REPORT INFORMATION
  Report Type: 
  Country: None (occurrence: None)
  Receive Date: 20100521
  Receipt Date: 20100510
  Transmission Date: 20101027
  Serious: Yes (Disabling)
  Sender: FDA-Public Use
  Company Number: 27797

PATIENT
  Age: 42 Year
  Sex: Female

DRUGS (2)
  1. COLIRCUSI CICLOPLEJICO (CYCLOPENTOLATE HYDROCHLORIDE) 1% EYE DROPS, SO [Suspect]
     Indication: OPHTHALMOLOGICAL EXAMINATION
     Dosage: 4 GTTS ONCE OPHT
     Route: 047
     Dates: start: 20040220, end: 20040220
  2. EUTIROX (LEVOTHYROXINE SODIUM) [Concomitant]

REACTIONS (14)
  - ABDOMINAL PAIN UPPER [None]
  - ANXIETY [None]
  - BLOOD THYROID STIMULATING HORMONE INCREASED [None]
  - CARDIAC DISORDER [None]
  - CHRONIC FATIGUE SYNDROME [None]
  - EXTRAPYRAMIDAL DISORDER [None]
  - FIBROMYALGIA [None]
  - HAND DEFORMITY [None]
  - IMPAIRED WORK ABILITY [None]
  - MULTIPLE CHEMICAL SENSITIVITY [None]
  - MUSCLE CONTRACTIONS INVOLUNTARY [None]
  - MUSCULOSKELETAL STIFFNESS [None]
  - SYNCOPE [None]
  - TACHYCARDIA [None]
